FAERS Safety Report 8281822-6 (Version None)
Quarter: 2012Q2

REPORT INFORMATION
  Report Type: 
  Country: None (occurrence: None)
  Receive Date: 20120413
  Receipt Date: 20120405
  Transmission Date: 20120825
  Serious: Yes (Other)
  Sender: FDA-Public Use
  Company Number: PHHY2011CA43629

PATIENT
  Sex: Male

DRUGS (3)
  1. SANDOSTATIN LAR [Suspect]
     Indication: PANCREATIC NEUROENDOCRINE TUMOUR METASTATIC
     Dosage: 30 MG ONCE A MONTH
     Route: 030
     Dates: start: 20100319
  2. AFINITOR [Suspect]
     Indication: PANCREATIC NEUROENDOCRINE TUMOUR METASTATIC
     Dosage: 10 MG, QD
     Route: 048
     Dates: start: 20110301, end: 20120216
  3. AFINITOR [Suspect]
     Dosage: 10 MG EVERY OTHER DAY
     Route: 048
     Dates: start: 20110301, end: 20120216

REACTIONS (7)
  - PANCREATIC DISORDER [None]
  - GASTROINTESTINAL BACTERIAL INFECTION [None]
  - BLOOD PRESSURE INCREASED [None]
  - DIABETES MELLITUS [None]
  - GALLBLADDER OBSTRUCTION [None]
  - NASOPHARYNGITIS [None]
  - COUGH [None]
